FAERS Safety Report 9094353 (Version 1)
Quarter: 2013Q1

REPORT INFORMATION
  Report Type: Spontaneous
  Country: US (occurrence: None)
  Receive Date: 20130214
  Receipt Date: 20130214
  Transmission Date: 20140127
  Serious: Yes (Hospitalization)
  Sender: FDA-Public Use
  Company Number: None

PATIENT
  Age: 26 Year
  Sex: Male
  Weight: 85.5 kg

DRUGS (1)
  1. FLUOXETINE [Suspect]
     Indication: DEPRESSION
     Dosage: 20 MG EVERY DAY  PO
     Route: 048
     Dates: start: 20121120

REACTIONS (4)
  - Overdose [None]
  - Nausea [None]
  - Vomiting [None]
  - Suicide attempt [None]
